FAERS Safety Report 7733596-2 (Version None)
Quarter: 2011Q3

REPORT INFORMATION
  Report Type: 
  Country: None (occurrence: None)
  Receive Date: 20110907
  Receipt Date: 20110826
  Transmission Date: 20111222
  Serious: Yes (Other)
  Sender: FDA-Public Use
  Company Number: US-JNJFOC-20110813119

PATIENT
  Sex: Female

DRUGS (2)
  1. MYLANTA MAXIMUM STRENGTH CHERRY [Suspect]
     Indication: ULCER
     Route: 048
  2. MYLANTA MAXIMUM STRENGTH CHERRY [Suspect]
     Indication: DYSPEPSIA
     Route: 048

REACTIONS (3)
  - PRODUCT QUALITY ISSUE [None]
  - NEUROPATHY PERIPHERAL [None]
  - OFF LABEL USE [None]
